FAERS Safety Report 4647226-X (Version None)
Quarter: 2005Q2

REPORT INFORMATION
  Report Type: 
  Country: None (occurrence: None)
  Receive Date: 20050426
  Receipt Date: 20050418
  Transmission Date: 20051028
  Serious: Yes (Hospitalization)
  Sender: FDA-Public Use
  Company Number: 2005061918

PATIENT
  Age: 41 Year

DRUGS (9)
  1. ATORVASTATIN (ATORVASTATIN) [Suspect]
     Indication: HYPERCHOLESTEROLAEMIA
     Dosage: (80 MG), ORAL
     Route: 048
     Dates: start: 20050101, end: 20050407
  2. EZETIMIBE (EZETIMIBE) [Suspect]
     Indication: HYPERCHOLESTEROLAEMIA
     Dosage: (10 MG), ORAL
     Route: 048
     Dates: start: 20050101, end: 20050407
  3. ASPIRIN [Concomitant]
  4. RAMIPRIL [Concomitant]
  5. ISOSORBIDE MONONITRATE [Concomitant]
  6. PROPYLTHIOURACIL [Concomitant]
  7. NICORANDIL (NICORANDIL) [Concomitant]
  8. BISOPROLOL (BISOPROLOL) [Concomitant]
  9. CLOPIDOGREL BISULFATE [Concomitant]

REACTIONS (3)
  - HEPATITIS ACUTE [None]
  - PROTHROMBIN TIME PROLONGED [None]
  - VIRAL INFECTION [None]
